FAERS Safety Report 8793210 (Version 2)
Quarter: 2012Q4

REPORT INFORMATION
  Report Type: 
  Country: US (occurrence: US)
  Receive Date: 20120918
  Receipt Date: 20120920
  Transmission Date: 20130627
  Serious: Yes (Hospitalization, Other)
  Sender: FDA-Public Use
  Company Number: US-BAYER-2012-096512

PATIENT
  Age: 78 Year
  Sex: Female
  Weight: 61 kg

DRUGS (6)
  1. RID SHAMPOO [Suspect]
     Dosage: 1 DF, 3 applications 7 to 10 days apart
     Route: 061
     Dates: end: 201208
  2. AMLODIPINE [Concomitant]
  3. METOPROLOL [Concomitant]
  4. PLAVIX [Concomitant]
  5. OXYBUTYN [Concomitant]
  6. LISINOPRIL [Concomitant]

REACTIONS (11)
  - Paraesthesia oral [None]
  - Hypersensitivity [Recovering/Resolving]
  - Oedema mouth [Recovering/Resolving]
  - Swollen tongue [Recovering/Resolving]
  - Paraesthesia oral [Recovering/Resolving]
  - Paraesthesia oral [Recovering/Resolving]
  - Oral discomfort [Recovering/Resolving]
  - Glossodynia [Recovering/Resolving]
  - Oral pain [Recovering/Resolving]
  - Paraesthesia [None]
  - Burning sensation [None]
